FAERS Safety Report 17040565 (Version 3)
Quarter: 2020Q1

REPORT INFORMATION
  Report Type: Spontaneous
  Country: US (occurrence: US)
  Receive Date: 20191117
  Receipt Date: 20200120
  Transmission Date: 20200409
  Serious: Yes (Hospitalization)
  Sender: FDA-Public Use
  Company Number: US-LEXICON PHARMACEUTICALS, INC-19-1606-01007

PATIENT
  Sex: Male

DRUGS (2)
  1. OCTREOTIDE. [Concomitant]
     Active Substance: OCTREOTIDE
  2. XERMELO [Suspect]
     Active Substance: TELOTRISTAT ETHYL
     Indication: NEUROENDOCRINE TUMOUR
     Route: 048
     Dates: start: 20191101

REACTIONS (6)
  - Feeding disorder [Unknown]
  - Pyrexia [Unknown]
  - Diarrhoea [Unknown]
  - Viral infection [Unknown]
  - Malaise [Not Recovered/Not Resolved]
  - Constipation [Not Recovered/Not Resolved]
